FAERS Safety Report 17143362 (Version 1)
Quarter: 2019Q4

REPORT INFORMATION
  Report Type: Spontaneous
  Country: US (occurrence: US)
  Receive Date: 20191211
  Receipt Date: 20191211
  Transmission Date: 20200122
  Serious: No
  Sender: FDA-Public Use
  Company Number: US-AMERICAN REGENT INC-2019002186

PATIENT
  Sex: Female

DRUGS (1)
  1. VENOFER [Suspect]
     Active Substance: IRON SUCROSE
     Indication: PRODUCT USED FOR UNKNOWN INDICATION
     Dosage: 200 MILLIGRAM, SINGLE
     Route: 042
     Dates: start: 20191003, end: 20191003

REACTIONS (1)
  - Extravasation [Unknown]

NARRATIVE: CASE EVENT DATE: 20191003
